FAERS Safety Report 14634882 (Version 1)
Quarter: 2018Q1

REPORT INFORMATION
  Report Type: Spontaneous
  Country: US (occurrence: US)
  Receive Date: 20180313
  Receipt Date: 20180313
  Transmission Date: 20180509
  Serious: No
  Sender: FDA-Public Use
  Company Number: None

PATIENT
  Sex: Female
  Weight: 89.63 kg

DRUGS (1)
  1. TRILEPTAL [Suspect]
     Active Substance: OXCARBAZEPINE
     Indication: MAJOR DEPRESSION
     Route: 048
     Dates: start: 2015

REACTIONS (3)
  - Aggression [None]
  - Product substitution issue [None]
  - Depression [None]

NARRATIVE: CASE EVENT DATE: 2015
